FAERS Safety Report 15202200 (Version 1)
Quarter: 2018Q3

REPORT INFORMATION
  Report Type: Spontaneous
  Country: US (occurrence: US)
  Receive Date: 20180627
  Receipt Date: 20180627
  Transmission Date: 20181010
  Serious: Yes (Hospitalization)
  Sender: FDA-Public Use
  Company Number: None

PATIENT
  Age: 62 Year
  Sex: Female
  Weight: 82 kg

DRUGS (9)
  1. CADEX [Concomitant]
  2. STILNOX [Concomitant]
     Active Substance: ZOLPIDEM TARTRATE
  3. EPCLUSA [Suspect]
     Active Substance: SOFOSBUVIR\VELPATASVIR
     Indication: HEPATITIS C
     Route: 048
     Dates: start: 20170831
  4. CARVEDILOL. [Concomitant]
     Active Substance: CARVEDILOL
  5. HYLO?COMOD [Concomitant]
     Active Substance: HYALURONATE SODIUM
  6. NORMOPRESAN [Concomitant]
  7. OMEPRADEX [Concomitant]
     Active Substance: OMEPRAZOLE
  8. URSOLIT [Concomitant]
  9. FUSID [Concomitant]
     Active Substance: FUROSEMIDE

REACTIONS (3)
  - Chest pain [None]
  - Pain in extremity [None]
  - Hyperventilation [None]

NARRATIVE: CASE EVENT DATE: 20170925
